FAERS Safety Report 20516331 (Version 2)
Quarter: 2022Q1

REPORT INFORMATION
  Report Type: Report from Study
  Country: AU (occurrence: AU)
  Receive Date: 20220225
  Receipt Date: 20220301
  Transmission Date: 20220423
  Serious: Yes (Other)
  Sender: FDA-Public Use
  Company Number: AU-NOVARTISPH-NVSC2021AU129730

PATIENT
  Age: 46 Year
  Sex: Female

DRUGS (3)
  1. MAYZENT [Suspect]
     Active Substance: SIPONIMOD
     Indication: Secondary progressive multiple sclerosis
     Dosage: 0.25 MG, QD
     Route: 048
     Dates: start: 20210531
  2. MAYZENT [Suspect]
     Active Substance: SIPONIMOD
     Dosage: 0.75 MG, QD
     Route: 048
     Dates: start: 20210531
  3. MAYZENT [Suspect]
     Active Substance: SIPONIMOD
     Dosage: 2 MG, QD
     Route: 048
     Dates: start: 20210601

REACTIONS (13)
  - Optic neuritis [Unknown]
  - Eye pain [Unknown]
  - Vision blurred [Unknown]
  - Hyperthyroidism [Unknown]
  - Syncope [Unknown]
  - Multiple sclerosis [Unknown]
  - Urinary tract infection [Unknown]
  - Malaise [Unknown]
  - Headache [Unknown]
  - Heart rate decreased [Unknown]
  - Pain in extremity [Unknown]
  - Fatigue [Unknown]
  - COVID-19 [Unknown]

NARRATIVE: CASE EVENT DATE: 20210602
